FAERS Safety Report 4847955-9 (Version None)
Quarter: 2005Q4

REPORT INFORMATION
  Report Type: 
  Country: None (occurrence: None)
  Receive Date: 20051206
  Receipt Date: 20051121
  Transmission Date: 20060501
  Serious: Yes (Hospitalization, Other)
  Sender: FDA-Public Use
  Company Number: US200511002262

PATIENT
  Age: 51 Year
  Sex: Female

DRUGS (2)
  1. PROZAC [Suspect]
     Indication: DEPRESSION
     Dates: start: 20010101
  2. VITAMINS-MINERALS THERAPEUTIC (VITAMINS-MINERALS THERAPEUTIC UNKNOWN F [Concomitant]

REACTIONS (4)
  - DEATH OF PARENT [None]
  - DEPRESSION [None]
  - GASTRIC BYPASS [None]
  - TREATMENT NONCOMPLIANCE [None]
